FAERS Safety Report 5117013-7 (Version None)
Quarter: 2006Q3

REPORT INFORMATION
  Report Type: 
  Country: None (occurrence: None)
  Receive Date: 20060928
  Receipt Date: 20060823
  Transmission Date: 20061208
  Serious: Yes (Other)
  Sender: FDA-Public Use
  Company Number: US-ALLERGAN-0604257US

PATIENT
  Sex: Female
  Weight: 74.829 kg

DRUGS (10)
  1. BOTOX [Suspect]
     Indication: IMPAIRED GASTRIC EMPTYING
     Dosage: 100 UNITS, UNK
     Route: 030
     Dates: start: 20060816, end: 20060816
  2. HUMALOG                            /00030501/ [Concomitant]
     Indication: DIABETES MELLITUS NON-INSULIN-DEPENDENT
  3. COPAXONE                           /01410902/ [Concomitant]
     Indication: DRUG USE FOR UNKNOWN INDICATION
  4. NORTRIPTYLINE HCL [Concomitant]
     Indication: DRUG USE FOR UNKNOWN INDICATION
     Route: 048
  5. PRILOSEC                           /00661201/ [Concomitant]
     Indication: DRUG USE FOR UNKNOWN INDICATION
     Route: 048
  6. TRAZODONE HCL [Concomitant]
     Indication: DRUG USE FOR UNKNOWN INDICATION
     Route: 048
  7. JUNEL FE [Concomitant]
     Indication: DRUG USE FOR UNKNOWN INDICATION
     Dosage: UNK, QD
     Route: 048
  8. TAGAMET                            /00397401/ [Concomitant]
     Indication: DRUG USE FOR UNKNOWN INDICATION
     Route: 048
  9. ZOFRAN [Concomitant]
     Indication: VOMITING
     Dosage: UNK, PRN
     Route: 048
  10. REGLAN                             /00041901/ [Concomitant]
     Indication: DRUG USE FOR UNKNOWN INDICATION
     Dosage: 50 MG, PRN
     Route: 048

REACTIONS (19)
  - ABDOMINAL HERNIA [None]
  - ABDOMINAL PAIN [None]
  - ANGIONEUROTIC OEDEMA [None]
  - ANOREXIA [None]
  - BLOOD PRESSURE INCREASED [None]
  - DYSPHAGIA [None]
  - DYSPHONIA [None]
  - DYSPNOEA [None]
  - ERYTHEMA [None]
  - EYELID OEDEMA [None]
  - HYPERSENSITIVITY [None]
  - KIDNEY INFECTION [None]
  - NASOPHARYNGITIS [None]
  - OEDEMA PERIPHERAL [None]
  - SHIFT TO THE LEFT [None]
  - SUPERIOR VENA CAVAL OCCLUSION [None]
  - SWELLING FACE [None]
  - THROAT TIGHTNESS [None]
  - URTICARIA [None]
